FAERS Safety Report 4543613-9 (Version None)
Quarter: 2005Q1

REPORT INFORMATION
  Report Type: 
  Country: None (occurrence: None)
  Receive Date: 20050103
  Receipt Date: 20041217
  Transmission Date: 20050727
  Serious: Yes (Life-Threatening, Hospitalization, Other)
  Sender: FDA-Public Use
  Company Number: ZA-GLAXOSMITHKLINE-B0362673A

PATIENT
  Age: 17 Year
  Sex: Female
  Weight: 50 kg

DRUGS (3)
  1. ATOVAQUONE + PROGUANIL HYDROCHLORIDE [Suspect]
     Indication: MALARIA PROPHYLAXIS
     Dosage: 1TAB PER DAY
     Route: 048
     Dates: start: 20041208, end: 20041212
  2. PRAZIQUANTEL [Concomitant]
     Indication: NEUROCYSTICERCOSIS
  3. EPILIM [Concomitant]
     Indication: EPILEPSY
     Route: 048
     Dates: start: 19930101

REACTIONS (6)
  - CEREBRAL PARENCHYMAL CALCIFICATION [None]
  - COMPLEX PARTIAL SEIZURES [None]
  - COMPUTERISED TOMOGRAM ABNORMAL [None]
  - CONVULSION [None]
  - DRUG INEFFECTIVE [None]
  - STATUS EPILEPTICUS [None]
